FAERS Safety Report 8588461-8 (Version None)
Quarter: 2012Q3

REPORT INFORMATION
  Report Type: 
  Country: None (occurrence: None)
  Receive Date: 20120813
  Receipt Date: 20120731
  Transmission Date: 20120928
  Serious: Yes (Other)
  Sender: FDA-Public Use
  Company Number: CA-JNJFOC-20120800776

PATIENT
  Sex: Male
  Weight: 51.2 kg

DRUGS (4)
  1. REMICADE [Suspect]
     Indication: CROHN'S DISEASE
     Route: 042
     Dates: start: 20050308
  2. REMICADE [Suspect]
     Route: 042
     Dates: start: 20060719, end: 20070813
  3. REMICADE [Suspect]
     Route: 042
     Dates: start: 20101104
  4. IMURAN [Concomitant]
     Indication: PRODUCT USED FOR UNKNOWN INDICATION
     Route: 048

REACTIONS (4)
  - FISTULA [None]
  - DRUG INEFFECTIVE [None]
  - NAUSEA [None]
  - FATIGUE [None]
